FAERS Safety Report 17217844 (Version 1)
Quarter: 2019Q4

REPORT INFORMATION
  Report Type: Spontaneous
  Country: FR (occurrence: FR)
  Receive Date: 20191231
  Receipt Date: 20191231
  Transmission Date: 20200122
  Serious: Yes (Other)
  Sender: FDA-Public Use
  Company Number: FR-TEVA-2019-FR-1159339

PATIENT
  Age: 59 Year
  Sex: Male

DRUGS (4)
  1. CHLORHYDRATE DE NEFOPAM [Concomitant]
     Active Substance: NEFOPAM HYDROCHLORIDE
     Route: 048
  2. LOVENOX [Concomitant]
     Active Substance: ENOXAPARIN SODIUM
     Dosage: 4,000 ANTI-XA IU / 0.4 ML,
     Route: 058
  3. TRAMADOL BASE [Suspect]
     Active Substance: TRAMADOL
     Indication: SCIATICA
     Dosage: 50 MG
     Route: 048
     Dates: start: 20191018, end: 20191020
  4. CLAMOXYL 1 G, COMPRIM? DISPERSIBLE [Concomitant]
     Active Substance: AMOXICILLIN
     Route: 048

REACTIONS (1)
  - Mixed liver injury [Recovering/Resolving]

NARRATIVE: CASE EVENT DATE: 20191022
